FAERS Safety Report 10233108 (Version 2)
Quarter: 2014Q2

REPORT INFORMATION
  Report Type: Report from Study
  Country: AR (occurrence: AR)
  Receive Date: 20140612
  Receipt Date: 20140612
  Transmission Date: 20141212
  Serious: Yes (Disabling, Other)
  Sender: FDA-Public Use
  Company Number: AR-ABBVIE-13P-007-1083376-00

PATIENT
  Age: 59 Year
  Sex: Female
  Weight: 97 kg

DRUGS (1)
  1. HUMIRA [Suspect]
     Indication: RHEUMATOID ARTHRITIS
     Route: 058
     Dates: start: 20121211, end: 20130410

REACTIONS (4)
  - Wrist fracture [Not Recovered/Not Resolved]
  - Accident [Unknown]
  - Medical device removal [Recovered/Resolved]
  - Arthralgia [Recovered/Resolved]
